FAERS Safety Report 4335625-5 (Version None)
Quarter: 2004Q2

REPORT INFORMATION
  Report Type: 
  Country: None (occurrence: None)
  Receive Date: 20040409
  Receipt Date: 20040401
  Transmission Date: 20050107
  Serious: Yes (Hospitalization)
  Sender: FDA-Public Use
  Company Number: US-MERCK-0404USA00145

PATIENT
  Age: 57 Year
  Sex: Male

DRUGS (4)
  1. CODEINE [Concomitant]
     Indication: HAEMORRHOIDS
     Route: 065
  2. CODEINE [Concomitant]
     Indication: VARICOSE VEIN
     Route: 065
  3. VIOXX [Suspect]
     Indication: PAIN
     Route: 048
     Dates: start: 20040301
  4. VIOXX [Suspect]
     Route: 048

REACTIONS (1)
  - PARAESTHESIA [None]
